FAERS Safety Report 8377928-3 (Version None)
Quarter: 2012Q2

REPORT INFORMATION
  Report Type: 
  Country: None (occurrence: None)
  Receive Date: 20120522
  Receipt Date: 20120507
  Transmission Date: 20120825
  Serious: Yes (Other)
  Sender: FDA-Public Use
  Company Number: CHPA2012US010693

PATIENT
  Age: 68 Year
  Sex: Female

DRUGS (2)
  1. DRIXORAL [Suspect]
     Dosage: UNK, UNK
     Route: 065
  2. OTRIVIN COLD + ALLERGY MEASURED DOSE PUMP [Suspect]
     Indication: NASAL CONGESTION
     Dosage: ONCE PER NIGHT
     Route: 045
     Dates: start: 19920101

REACTIONS (4)
  - NASAL CONGESTION [None]
  - DIABETES MELLITUS [None]
  - CONDITION AGGRAVATED [None]
  - INCORRECT DRUG ADMINISTRATION DURATION [None]
